FAERS Safety Report 15801692 (Version 1)
Quarter: 2019Q1

REPORT INFORMATION
  Report Type: Spontaneous
  Country: US (occurrence: US)
  Receive Date: 20190109
  Receipt Date: 20190109
  Transmission Date: 20190417
  Serious: No
  Sender: FDA-Public Use
  Company Number: US-PFIZER INC-2019010353

PATIENT
  Age: 18 Year
  Sex: Male

DRUGS (2)
  1. GENOTROPIN [Suspect]
     Active Substance: SOMATROPIN
     Indication: OPTIC NERVE HYPOPLASIA
  2. GENOTROPIN [Suspect]
     Active Substance: SOMATROPIN
     Indication: EMPTY SELLA SYNDROME
     Dosage: 2 MG, DAILY

REACTIONS (4)
  - Blood prolactin decreased [Unknown]
  - Blood bilirubin decreased [Unknown]
  - Blood alkaline phosphatase increased [Unknown]
  - Blood glucose increased [Unknown]
